FAERS Safety Report 21315642 (Version 2)
Quarter: 2022Q4

REPORT INFORMATION
  Report Type: Report from Study
  Country: US (occurrence: US)
  Receive Date: 20220909
  Receipt Date: 20221013
  Transmission Date: 20230113
  Serious: Yes (Other)
  Sender: FDA-Public Use
  Company Number: US-ABBVIE-22K-163-4533308-00

PATIENT
  Sex: Female

DRUGS (5)
  1. HUMIRA [Suspect]
     Active Substance: ADALIMUMAB
     Indication: Crohn^s disease
     Route: 058
  2. HUMIRA [Suspect]
     Active Substance: ADALIMUMAB
     Dosage: CHANGED FROM BI WEEKLY TO WEEKLY
     Route: 058
  3. PFIZER-BIONTECH COVID-19 VACCINE [Concomitant]
     Active Substance: TOZINAMERAN
     Indication: COVID-19 immunisation
     Dosage: FIRST DOSE?ONE IN ONCE FREQUENCY
     Route: 030
     Dates: start: 2021, end: 2021
  4. PFIZER-BIONTECH COVID-19 VACCINE [Concomitant]
     Active Substance: TOZINAMERAN
     Indication: COVID-19 immunisation
     Dosage: SECOND DOSE?ONE IN ONCE FREQUENCY
     Route: 030
     Dates: start: 2021, end: 2021
  5. PFIZER-BIONTECH COVID-19 VACCINE [Concomitant]
     Active Substance: TOZINAMERAN
     Indication: COVID-19 immunisation
     Dosage: THIRD  DOSE?ONE IN ONCE FREQUENCY
     Route: 030
     Dates: start: 2021, end: 2021

REACTIONS (4)
  - Bartholin^s cyst [Unknown]
  - Infected fistula [Unknown]
  - Post procedural inflammation [Recovering/Resolving]
  - Inflammation [Recovering/Resolving]
